FAERS Safety Report 5271744-7 (Version None)
Quarter: 2007Q1

REPORT INFORMATION
  Report Type: 
  Country: None (occurrence: None)
  Receive Date: 20070321
  Receipt Date: 20070309
  Transmission Date: 20070707
  Serious: Yes (Hospitalization)
  Sender: FDA-Public Use
  Company Number: DE-PFIZER INC-2007006176

PATIENT
  Sex: Female

DRUGS (2)
  1. MEDROXYPROGESTERONE ACETATE [Suspect]
     Dosage: FREQ:1ST INJECTION
     Route: 063
     Dates: start: 20041101, end: 20041101
  2. MEDROXYPROGESTERONE ACETATE [Suspect]
     Dosage: FREQ:LAST INJECTION
     Route: 063
     Dates: start: 20060101, end: 20060101

REACTIONS (7)
  - BLOOD ALKALINE PHOSPHATASE INCREASED [None]
  - DIARRHOEA HAEMORRHAGIC [None]
  - DRUG EXPOSURE VIA BREAST MILK [None]
  - GAMMA-GLUTAMYLTRANSFERASE INCREASED [None]
  - GASTROENTERITIS [None]
  - TRANSAMINASES INCREASED [None]
  - URINARY TRACT INFECTION [None]
